FAERS Safety Report 7298545-2 (Version None)
Quarter: 2011Q1

REPORT INFORMATION
  Report Type: 
  Country: None (occurrence: None)
  Receive Date: 20110217
  Receipt Date: 20101022
  Transmission Date: 20110831
  Serious: Yes (Hospitalization)
  Sender: FDA-Public Use
  Company Number: US-BAYER-201029506NA

PATIENT
  Sex: Female
  Weight: 110 kg

DRUGS (15)
  1. YAZ [Suspect]
     Indication: ORAL CONTRACEPTION
     Route: 048
     Dates: start: 20060101, end: 20081012
  2. SUMATRIPTAN [Concomitant]
  3. AMOXICILLIN [Concomitant]
  4. CEPHALEXIN [Concomitant]
  5. WARFARIN [Concomitant]
     Indication: DEEP VEIN THROMBOSIS
     Route: 048
  6. OCELLA [Suspect]
     Indication: ORAL CONTRACEPTION
     Route: 048
     Dates: start: 20091001, end: 20100110
  7. ZITHROMAX [Concomitant]
  8. ALBUTEROL [Concomitant]
  9. IMITREX [Concomitant]
     Indication: MIGRAINE
     Dosage: 50 MG, UNK
  10. ATIVAN [Concomitant]
     Dosage: 0.5 MG, UNK
  11. METFORMIN HCL [Concomitant]
     Dosage: 1 UNK, UNK
     Route: 048
     Dates: start: 20071228
  12. CLOMIPHENE CITRATE [Concomitant]
     Dosage: UNK
     Route: 048
     Dates: start: 20080305
  13. YASMIN [Suspect]
     Indication: ORAL CONTRACEPTION
     Route: 048
  14. ASCORBIC ACID [Concomitant]
  15. ASCORBIC ACID [Concomitant]

REACTIONS (9)
  - MENSTRUAL DISORDER [None]
  - PULMONARY EMBOLISM [None]
  - DEEP VEIN THROMBOSIS [None]
  - THROAT TIGHTNESS [None]
  - DYSPNOEA [None]
  - HEADACHE [None]
  - NERVOUSNESS [None]
  - METRORRHAGIA [None]
  - CHEST PAIN [None]
